FAERS Safety Report 9321503 (Version 1)
Quarter: 2013Q2

REPORT INFORMATION
  Report Type: Report from Study
  Country: VE (occurrence: VE)
  Receive Date: 20130531
  Receipt Date: 20130531
  Transmission Date: 20140414
  Serious: Yes (Death, Other)
  Sender: FDA-Public Use
  Company Number: PHHY2013VE053724

PATIENT
  Age: 25 Year
  Sex: Male

DRUGS (1)
  1. SANDOSTATIN [Suspect]
     Indication: PITUITARY TUMOUR BENIGN
     Dosage: TID
     Route: 058
     Dates: start: 20130429

REACTIONS (9)
  - Respiratory arrest [Fatal]
  - Renal failure [Fatal]
  - Pulmonary embolism [Fatal]
  - General physical health deterioration [Unknown]
  - Asphyxia [Not Recovered/Not Resolved]
  - Erythema [Not Recovered/Not Resolved]
  - Haematoma [Not Recovered/Not Resolved]
  - Haemorrhage [Not Recovered/Not Resolved]
  - Skin disorder [Not Recovered/Not Resolved]
